FAERS Safety Report 7642260-X (Version None)
Quarter: 2011Q3

REPORT INFORMATION
  Report Type: 
  Country: None (occurrence: None)
  Receive Date: 20110728
  Receipt Date: 20110720
  Transmission Date: 20111222
  Serious: Yes (Other)
  Sender: FDA-Public Use
  Company Number: PHHY2009JP50940

PATIENT
  Age: 6 Year
  Sex: Male

DRUGS (4)
  1. SANDIMMUNE [Suspect]
     Indication: BONE MARROW TRANSPLANT
     Dosage: UNK UKN, UNK
     Route: 041
     Dates: start: 20020101
  2. BUSULFAN [Concomitant]
     Indication: BONE MARROW TRANSPLANT
  3. CYCLOPHOSPHAMIDE [Concomitant]
     Indication: BONE MARROW TRANSPLANT
  4. SANDIMMUNE [Suspect]
     Dosage: UNK UKN, UNK
     Dates: start: 20030904, end: 20030904

REACTIONS (6)
  - DYSPNOEA [None]
  - BLOOD PRESSURE DECREASED [None]
  - ANAPHYLACTIC SHOCK [None]
  - GRAFT VERSUS HOST DISEASE [None]
  - RASH [None]
  - MALAISE [None]
